FAERS Safety Report 23684962 (Version 1)
Quarter: 2024Q1

REPORT INFORMATION
  Report Type: Report from Study
  Country: US (occurrence: US)
  Receive Date: 20240328
  Receipt Date: 20240328
  Transmission Date: 20240410
  Serious: No
  Sender: FDA-Public Use
  Company Number: US-ABBVIE-5682126

PATIENT
  Sex: Female

DRUGS (1)
  1. SKYRIZI [Suspect]
     Active Substance: RISANKIZUMAB-RZAA
     Indication: Crohn^s disease
     Route: 042
     Dates: start: 20231116

REACTIONS (4)
  - Liver injury [Not Recovered/Not Resolved]
  - Psoriasis [Unknown]
  - Muscle spasms [Unknown]
  - Nausea [Not Recovered/Not Resolved]
